FAERS Safety Report 6099893-4 (Version None)
Quarter: 2009Q1

REPORT INFORMATION
  Report Type: 
  Country: None (occurrence: None)
  Receive Date: 20090226
  Receipt Date: 20090210
  Transmission Date: 20090719
  Serious: Yes (Hospitalization)
  Sender: FDA-Public Use
  Company Number: 000338

PATIENT
  Age: 81 Year
  Sex: Male

DRUGS (8)
  1. ROTIGOTINE (ROTTGOTINE) (LOT#S: 091807070003) [Suspect]
     Indication: PARKINSON'S DISEASE
     Dosage: TRANSDERMAL PATCH,   6 MG QD ,TRANSDERMAL
     Route: 062
     Dates: start: 20080228, end: 20090204
  2. PARACETAMOL (PARACETAMOL) [Concomitant]
  3. CARTIA  /00002701/ (ACETYLSALICYLIC ACID) [Concomitant]
  4. CITALOPRAM HYDROBROMIDE [Concomitant]
  5. DOMPERIDONE (DOMPERIDONE) [Concomitant]
  6. GAVISCON /00237601/ (GAVISCON [Concomitant]
  7. SIMVASTATIN [Concomitant]
  8. SINEMET [Concomitant]

REACTIONS (8)
  - BLOOD PRESSURE INCREASED [None]
  - BURSITIS [None]
  - CARDIAC MURMUR [None]
  - DIASTOLIC DYSFUNCTION [None]
  - HEART RATE IRREGULAR [None]
  - HYPERHIDROSIS [None]
  - LEFT VENTRICULAR HYPERTROPHY [None]
  - PALLOR [None]
